FAERS Safety Report 17572043 (Version 1)
Quarter: 2020Q1

REPORT INFORMATION
  Report Type: Spontaneous
  Country: NL (occurrence: NL)
  Receive Date: 20200323
  Receipt Date: 20200323
  Transmission Date: 20200409
  Serious: Yes (Hospitalization)
  Sender: FDA-Public Use
  Company Number: NL-PFIZER INC-2020122584

PATIENT
  Sex: Male
  Weight: 90 kg

DRUGS (16)
  1. ALLOPURINOL. [Concomitant]
     Active Substance: ALLOPURINOL
     Dosage: 100 MILLIGRAM
  2. TRIAMCINOLONACETONIDE [Concomitant]
     Active Substance: TRIAMCINOLONE ACETONIDE
     Dosage: 1 MILLIGRAM PER GRAM
  3. CARVEDILOL. [Concomitant]
     Active Substance: CARVEDILOL
     Dosage: 25 MILLIGRAM
  4. SACUBITRIL W/VALSARTAN [Concomitant]
     Active Substance: SACUBITRIL\VALSARTAN
     Dosage: 97/103 MILLIGRAM
  5. EPLERENONE. [Concomitant]
     Active Substance: EPLERENONE
     Dosage: 25 MILLIGRAM
  6. ALFACALCIDOL [Concomitant]
     Active Substance: ALFACALCIDOL
     Dosage: 0.25 MICROGRAM
  7. APIXABAN [Concomitant]
     Active Substance: APIXABAN
     Dosage: 2 MILLIGRAM
  8. LANOXIN [Concomitant]
     Active Substance: DIGOXIN
     Dosage: 62 MICROGRAM
  9. NATRIUM BICARBONAT [Concomitant]
     Dosage: 500 MILLIGRAM
  10. LEVOMENTHOL [Concomitant]
     Active Substance: LEVOMENTHOL
     Dosage: 10 MILLIGRAM PER GRAM
  11. PREDNISOLON [PREDNISOLONE] [Concomitant]
     Active Substance: PREDNISOLONE
     Dosage: 5 MILLIGRAM
  12. PANTOPRAZOLE [Suspect]
     Active Substance: PANTOPRAZOLE
     Indication: PROPHYLAXIS
     Dosage: 40 MILLIGRAM, Q8HR
     Dates: start: 201910, end: 20200303
  13. FAMOTIDINE. [Concomitant]
     Active Substance: FAMOTIDINE
     Dosage: 20 MILLIGRAM
  14. SALBUTAMOL [Concomitant]
     Active Substance: ALBUTEROL
     Dosage: UNK
  15. CLOBETASOL [Concomitant]
     Active Substance: CLOBETASOL
     Dosage: 0.5 MILLIGRAM PER GRAM
  16. ATORVASTATINE [ATORVASTATIN] [Concomitant]
     Active Substance: ATORVASTATIN
     Dosage: 10 MILLIGRAM

REACTIONS (2)
  - Hypocalcaemia [Recovered/Resolved]
  - Hypomagnesaemia [Recovered/Resolved]
